FAERS Safety Report 5532501-7 (Version None)
Quarter: 2007Q4

REPORT INFORMATION
  Report Type: 
  Country: None (occurrence: None)
  Receive Date: 20071203
  Receipt Date: 20071121
  Transmission Date: 20080405
  Serious: Yes (Hospitalization, Other)
  Sender: FDA-Public Use
  Company Number: GB-PFIZER INC-2007098804

PATIENT
  Age: 20 Year
  Sex: Female
  Weight: 77 kg

DRUGS (5)
  1. HYDROCORTISONE ACETATE [Suspect]
     Indication: CROHN'S DISEASE
  2. REMICADE [Suspect]
     Indication: CROHN'S DISEASE
     Route: 042
  3. AZATHIOPRINE [Concomitant]
     Route: 048
  4. FLUOXETINE [Concomitant]
     Route: 048
  5. PREDNISOLONE [Concomitant]
     Route: 048

REACTIONS (2)
  - CHEST PAIN [None]
  - DYSPNOEA [None]
